FAERS Safety Report 20449610 (Version 3)
Quarter: 2023Q1

REPORT INFORMATION
  Report Type: Other
  Country: US (occurrence: None)
  Receive Date: 20220209
  Receipt Date: 20230213
  Transmission Date: 20230418
  Serious: No
  Sender: FDA-Public Use
  Company Number: US-ROCHE-3015461

PATIENT
  Age: 70 Year
  Sex: Female
  Weight: 74.910 kg

DRUGS (17)
  1. OCREVUS [Suspect]
     Active Substance: OCRELIZUMAB
     Indication: Relapsing multiple sclerosis
     Dosage: LAST DOT: 30/JUL/2021
     Route: 042
  2. OCREVUS [Suspect]
     Active Substance: OCRELIZUMAB
     Route: 042
  3. ARMODAFINIL [Concomitant]
     Active Substance: ARMODAFINIL
  4. BACLOFEN [Concomitant]
     Active Substance: BACLOFEN
  5. LEVOTHYROXINE [Concomitant]
     Active Substance: LEVOTHYROXINE
  6. AMITIZA [Concomitant]
     Active Substance: LUBIPROSTONE
  7. OZEMPIC [Concomitant]
     Active Substance: SEMAGLUTIDE
  8. GABAPENTIN [Concomitant]
     Active Substance: GABAPENTIN
  9. METFORMIN [Concomitant]
     Active Substance: METFORMIN HYDROCHLORIDE
     Route: 048
  10. VITAMIN D3 [Concomitant]
     Active Substance: CHOLECALCIFEROL
  11. PEPCID [Concomitant]
     Active Substance: FAMOTIDINE
  12. AMITRIPTYLINE [Concomitant]
     Active Substance: AMITRIPTYLINE
  13. LORATADINE [Concomitant]
     Active Substance: LORATADINE
  14. MELATONIN [Concomitant]
     Active Substance: MELATONIN
  15. KETOROLAC [Concomitant]
     Active Substance: KETOROLAC TROMETHAMINE
  16. MYCOSTATIN [Concomitant]
     Active Substance: NYSTATIN
  17. PREDNISOLONE ACETATE [Concomitant]
     Active Substance: PREDNISOLONE ACETATE

REACTIONS (3)
  - Fungal infection [Not Recovered/Not Resolved]
  - Skin exfoliation [Unknown]
  - Fall [Unknown]

NARRATIVE: CASE EVENT DATE: 20211101
